FAERS Safety Report 13517516 (Version 1)
Quarter: 2017Q2

REPORT INFORMATION
  Report Type: Spontaneous
  Country: US (occurrence: US)
  Receive Date: 20170505
  Receipt Date: 20170505
  Transmission Date: 20170830
  Serious: Yes (Hospitalization)
  Sender: FDA-Public Use
  Company Number: None

PATIENT
  Age: 61 Year
  Sex: Male
  Weight: 107.6 kg

DRUGS (12)
  1. ECOTRIN [Concomitant]
     Active Substance: ASPIRIN
  2. NORCO [Concomitant]
     Active Substance: ACETAMINOPHEN\HYDROCODONE BITARTRATE
  3. TENORMIN [Concomitant]
     Active Substance: ATENOLOL
  4. NOVOLOG [Concomitant]
     Active Substance: INSULIN ASPART
  5. LANTUS [Concomitant]
     Active Substance: INSULIN GLARGINE
  6. IBUPROFEN. [Concomitant]
     Active Substance: IBUPROFEN
  7. LIPITOR [Concomitant]
     Active Substance: ATORVASTATIN CALCIUM
  8. NEURONTIN [Concomitant]
     Active Substance: GABAPENTIN
  9. BACTRIM [Concomitant]
     Active Substance: SULFAMETHOXAZOLE\TRIMETHOPRIM
  10. RAMIPRIL. [Suspect]
     Active Substance: RAMIPRIL
     Indication: HYPERTENSION
     Route: 048
  11. AGGRENOX [Concomitant]
     Active Substance: ASPIRIN\DIPYRIDAMOLE
  12. TRIGLIDE [Concomitant]
     Active Substance: FENOFIBRATE

REACTIONS (3)
  - Tachycardia [None]
  - Acute kidney injury [None]
  - Hyperkalaemia [None]

NARRATIVE: CASE EVENT DATE: 20160915
